FAERS Safety Report 9450416 (Version 1)
Quarter: 2013Q3

REPORT INFORMATION
  Report Type: Spontaneous
  Country: FR (occurrence: FR)
  Receive Date: 20130809
  Receipt Date: 20130809
  Transmission Date: 20140515
  Serious: Yes (Hospitalization, Other)
  Sender: FDA-Public Use
  Company Number: FR-PFIZER INC-2013228413

PATIENT
  Age: 74 Year
  Sex: Male

DRUGS (8)
  1. TAHOR [Suspect]
     Dosage: 10 MG, DAILY
     Route: 048
  2. NEXAVAR [Suspect]
     Indication: HEPATOCELLULAR CARCINOMA
     Dosage: 400 MG, 2X/DAY
     Route: 048
     Dates: start: 20130612
  3. GLUCOPHAGE [Suspect]
     Dosage: 850 MG, 3X/DAY
     Route: 048
  4. GLICLAZIDE [Suspect]
     Dosage: 60 MG, DAILY
     Route: 048
  5. PLAVIX [Suspect]
     Dosage: 1 DF, DAILY
     Route: 048
  6. INEXIUM [Suspect]
     Dosage: 20 MG, DAILY
     Route: 048
  7. LOVENOX [Suspect]
     Dosage: 4000 IU, DAILY
     Route: 058
  8. FORTIMEL [Concomitant]

REACTIONS (7)
  - Aphasia [Recovered/Resolved]
  - Partial seizures [Recovered/Resolved]
  - Altered state of consciousness [Recovered/Resolved]
  - Ischaemic stroke [Unknown]
  - Ventricular extrasystoles [Unknown]
  - Arteriosclerosis [Unknown]
  - Action tremor [Unknown]
